FAERS Safety Report 18006317 (Version 1)
Quarter: 2020Q3

REPORT INFORMATION
  Report Type: Spontaneous
  Country: CZ (occurrence: CZ)
  Receive Date: 20200709
  Receipt Date: 20200709
  Transmission Date: 20201103
  Serious: Yes (Other)
  Sender: FDA-Public Use
  Company Number: CZ-ROCHE-2638778

PATIENT
  Sex: Female

DRUGS (1)
  1. XOLAIR [Suspect]
     Active Substance: OMALIZUMAB
     Indication: PRODUCT USED FOR UNKNOWN INDICATION
     Dosage: 450 MG
     Route: 065
     Dates: start: 20200611

REACTIONS (7)
  - Condition aggravated [Recovering/Resolving]
  - Erythema [Not Recovered/Not Resolved]
  - Rash [Not Recovered/Not Resolved]
  - Paraesthesia [Recovering/Resolving]
  - Heart rate increased [Recovering/Resolving]
  - Asthenia [Not Recovered/Not Resolved]
  - Dysstasia [Recovering/Resolving]

NARRATIVE: CASE EVENT DATE: 20200611
